FAERS Safety Report 24832247 (Version 1)
Quarter: 2025Q1

REPORT INFORMATION
  Report Type: Spontaneous
  Country: FR (occurrence: FR)
  Receive Date: 20250110
  Receipt Date: 20250110
  Transmission Date: 20250409
  Serious: Yes (Hospitalization)
  Sender: MYLAN
  Company Number: None

PATIENT
  Age: 71 Year
  Sex: Male
  Weight: 87 kg

DRUGS (13)
  1. ARIXTRA [Interacting]
     Active Substance: FONDAPARINUX SODIUM
     Indication: Cardiovascular event prophylaxis
     Dosage: 2.5 MILLIGRAM, QD (SOLUTION FOR INJECTION IN PRE-FILLED SYRINGE)
     Route: 058
     Dates: start: 20230924, end: 20231016
  2. KARDEGIC [Interacting]
     Active Substance: ASPIRIN DL-LYSINE
     Indication: Cardiovascular event prophylaxis
     Dosage: 160 MILLIGRAM, QD (POWDER FOR ORAL SOLUTION IN SACHET)
     Route: 048
     Dates: start: 20230924, end: 20231016
  3. METFORMIN HYDROCHLORIDE [Concomitant]
     Active Substance: METFORMIN HYDROCHLORIDE
     Indication: Type 2 diabetes mellitus
     Dosage: 1000 MILLIGRAM, Q8H
     Route: 048
  4. VILDAGLIPTIN [Concomitant]
     Active Substance: VILDAGLIPTIN
     Indication: Type 2 diabetes mellitus
     Dosage: 50 MILLIGRAM, BID
     Route: 048
  5. BISOPROLOL FUMARATE [Concomitant]
     Active Substance: BISOPROLOL FUMARATE
     Indication: Hypertension
     Dosage: 10 MILLIGRAM, QD
     Route: 048
  6. RAMIPRIL [Concomitant]
     Active Substance: RAMIPRIL
     Indication: Hypertension
     Dosage: 10 MILLIGRAM, QD
     Route: 048
  7. URAPIDIL [Concomitant]
     Active Substance: URAPIDIL
     Indication: Hypertension
     Dosage: 60 MILLIGRAM, QD
     Route: 048
  8. OXAZEPAM [Concomitant]
     Active Substance: OXAZEPAM
     Indication: Anxiety
     Dosage: 10 MILLIGRAM, QD
     Route: 048
  9. PAROXETINE HYDROCHLORIDE [Concomitant]
     Active Substance: PAROXETINE HYDROCHLORIDE
     Indication: Depression
     Dosage: 20 MILLIGRAM, QD
     Route: 048
  10. METOPIMAZINE [Concomitant]
     Active Substance: METOPIMAZINE
     Indication: Vomiting
     Dosage: 20 MILLIGRAM, QD
     Route: 048
  11. METOPIMAZINE [Concomitant]
     Active Substance: METOPIMAZINE
     Dosage: 7.5 MILLIGRAM, QD
     Route: 048
  12. LANSOPRAZOLE [Concomitant]
     Active Substance: LANSOPRAZOLE
     Indication: Product used for unknown indication
     Dosage: 15 MILLIGRAM, QD
     Route: 048
  13. POLYETHYLENE GLYCOLS [Concomitant]
     Active Substance: POLYETHYLENE GLYCOLS
     Indication: Constipation
     Dosage: 10 GRAM, QD
     Route: 048

REACTIONS (2)
  - Haemorrhagic stroke [Recovering/Resolving]
  - Drug interaction [Recovered/Resolved]

NARRATIVE: CASE EVENT DATE: 20230924
